FAERS Safety Report 5625544-6 (Version None)
Quarter: 2008Q1

REPORT INFORMATION
  Report Type: 
  Country: None (occurrence: None)
  Receive Date: 20080211
  Receipt Date: 20080211
  Transmission Date: 20080703
  Serious: No
  Sender: FDA-Public Use
  Company Number: None

PATIENT
  Age: 31 Year
  Sex: Male
  Weight: 69.8539 kg

DRUGS (2)
  1. OMNISCAN [Suspect]
     Indication: OSTEOMYELITIS
     Dosage: 16 CC  1   IV
     Route: 042
     Dates: start: 20060913
  2. OMNISCAN [Suspect]
     Indication: OSTEOMYELITIS
     Dosage: 16 CC  1  IV
     Route: 042
     Dates: start: 20061017

REACTIONS (1)
  - NEPHROGENIC SYSTEMIC FIBROSIS [None]
